FAERS Safety Report 20419676 (Version 3)
Quarter: 2023Q2

REPORT INFORMATION
  Report Type: Report from Study
  Country: US (occurrence: US)
  Receive Date: 20220203
  Receipt Date: 20230608
  Transmission Date: 20230721
  Serious: Yes (Hospitalization)
  Sender: FDA-Public Use
  Company Number: US-BAUSCH-BL-2022-003322

PATIENT
  Age: 71 Year
  Sex: Female

DRUGS (1)
  1. XIFAXAN [Suspect]
     Active Substance: RIFAXIMIN
     Indication: Hepatic cirrhosis
     Dosage: HAD BEEN TAKING THE MEDICATION FOR THE PAST 2.5 YEARS
     Route: 048
     Dates: end: 20230529

REACTIONS (4)
  - Hepatic encephalopathy [Unknown]
  - Insurance issue [Unknown]
  - Product use issue [Unknown]
  - Product distribution issue [Unknown]

NARRATIVE: CASE EVENT DATE: 20230530
